FAERS Safety Report 24297048 (Version 2)
Quarter: 2024Q3

REPORT INFORMATION
  Report Type: Report from Study
  Country: US (occurrence: US)
  Receive Date: 20240909
  Receipt Date: 20240928
  Transmission Date: 20241017
  Serious: Yes (Other)
  Sender: ROCHE
  Company Number: US-ROCHE-10000068346

PATIENT
  Age: 62 Year
  Sex: Female

DRUGS (7)
  1. OCREVUS [Suspect]
     Active Substance: OCRELIZUMAB
     Indication: Multiple sclerosis
     Route: 065
  2. PREDNISONE [Concomitant]
     Active Substance: PREDNISONE
     Route: 048
  3. AVONEX [Concomitant]
     Active Substance: INTERFERON BETA-1A
     Route: 030
  4. VALACYCLOVIR [Concomitant]
     Active Substance: VALACYCLOVIR HYDROCHLORIDE
     Route: 048
  5. SOTALOL [Concomitant]
     Active Substance: SOTALOL\SOTALOL HYDROCHLORIDE
     Route: 048
  6. XARELTO [Concomitant]
     Active Substance: RIVAROXABAN
     Route: 048
  7. LEVOTHYROXINE [Concomitant]
     Active Substance: LEVOTHYROXINE\LEVOTHYROXINE SODIUM
     Route: 048

REACTIONS (32)
  - Atrial fibrillation [Unknown]
  - Infusion related reaction [Unknown]
  - Arrhythmia [Unknown]
  - Dysuria [Unknown]
  - Oropharyngeal pain [Unknown]
  - Insomnia [Unknown]
  - Peripheral swelling [Unknown]
  - Osteopenia [Unknown]
  - Epistaxis [Unknown]
  - Anxiety [Unknown]
  - Dermatitis atopic [Unknown]
  - Fatigue [Unknown]
  - Rhinitis allergic [Unknown]
  - Colon cancer [Unknown]
  - Urine analysis abnormal [Unknown]
  - Diplopia [Unknown]
  - Obstructive sleep apnoea syndrome [Unknown]
  - Paraesthesia [Unknown]
  - Embolism venous [Unknown]
  - Ataxia [Unknown]
  - Optic neuritis [Unknown]
  - Vitamin B complex deficiency [Unknown]
  - Bronchial hyperreactivity [Unknown]
  - Herpes simplex [Unknown]
  - Occipital neuralgia [Unknown]
  - Anaemia [Unknown]
  - Hypertension [Unknown]
  - Meningitis [Unknown]
  - Hypothyroidism [Unknown]
  - Vitamin D deficiency [Unknown]
  - Binocular visual dysfunction [Unknown]
  - Arthralgia [Unknown]
